FAERS Safety Report 10153274 (Version 2)
Quarter: 2014Q2

REPORT INFORMATION
  Report Type: Spontaneous
  Country: BR (occurrence: BR)
  Receive Date: 20140505
  Receipt Date: 20140505
  Transmission Date: 20141212
  Serious: Yes (Other)
  Sender: FDA-Public Use
  Company Number: BR-PFIZER INC-2014112638

PATIENT
  Sex: Female

DRUGS (1)
  1. VIBRAMICINA [Suspect]
     Indication: URINARY TRACT INFECTION
     Dosage: 100 MG, 2X/DAY
     Route: 048
     Dates: start: 201404

REACTIONS (11)
  - Immunodeficiency [Unknown]
  - Fatigue [Not Recovered/Not Resolved]
  - Mouth injury [Not Recovered/Not Resolved]
  - Dry mouth [Not Recovered/Not Resolved]
  - Dysphagia [Unknown]
  - Oesophageal disorder [Not Recovered/Not Resolved]
  - Retching [Not Recovered/Not Resolved]
  - Vomiting [Unknown]
  - Dyspnoea [Unknown]
  - Candida infection [Not Recovered/Not Resolved]
  - Infection [Recovered/Resolved]
